FAERS Safety Report 21609065 (Version 1)
Quarter: 2022Q4

REPORT INFORMATION
  Report Type: Report from Study
  Country: US (occurrence: US)
  Receive Date: 20221117
  Receipt Date: 20221117
  Transmission Date: 20230113
  Serious: No
  Sender: FDA-Public Use
  Company Number: US-ABBVIE-22K-163-4351204-00

PATIENT
  Sex: Male

DRUGS (2)
  1. IMBRUVICA [Suspect]
     Active Substance: IBRUTINIB
     Indication: Chronic lymphocytic leukaemia (in remission)
     Dosage: TIME INTERVAL: 0.33333333 DAYS
     Route: 048
  2. IMBRUVICA [Suspect]
     Active Substance: IBRUTINIB
     Indication: Chronic lymphocytic leukaemia (in remission)
     Route: 048

REACTIONS (16)
  - Peripheral swelling [Unknown]
  - Fluid retention [Unknown]
  - Limb injury [Unknown]
  - Irritability [Unknown]
  - Loss of personal independence in daily activities [Unknown]
  - Taste disorder [Unknown]
  - Weight increased [Unknown]
  - Adverse drug reaction [Unknown]
  - Mobility decreased [Unknown]
  - Depression [Unknown]
  - Anger [Unknown]
  - Decreased appetite [Unknown]
  - Arthralgia [Unknown]
  - Pain in extremity [Unknown]
  - Asthenia [Unknown]
  - Fatigue [Not Recovered/Not Resolved]
